FAERS Safety Report 8419317-9 (Version None)
Quarter: 2012Q2

REPORT INFORMATION
  Report Type: 
  Country: None (occurrence: None)
  Receive Date: 20120601
  Receipt Date: 20120517
  Transmission Date: 20120825
  Serious: Yes (Other)
  Sender: FDA-Public Use
  Company Number: 2012SGN00223

PATIENT
  Sex: Male

DRUGS (1)
  1. ADCETRIS [Suspect]
     Indication: PRODUCT USED FOR UNKNOWN INDICATION
     Dosage: INTRAVENOUS
     Route: 042
     Dates: end: 20120508

REACTIONS (5)
  - CATHETER SITE CELLULITIS [None]
  - EXTRAVASATION [None]
  - DEVICE BREAKAGE [None]
  - BLISTER [None]
  - SKIN EXFOLIATION [None]
